FAERS Safety Report 4798928-6 (Version None)
Quarter: 2005Q4

REPORT INFORMATION
  Report Type: 
  Country: None (occurrence: None)
  Receive Date: 20051014
  Receipt Date: 20051006
  Transmission Date: 20060501
  Serious: Yes (Hospitalization)
  Sender: FDA-Public Use
  Company Number: 2005UW15035

PATIENT
  Age: 14790 Day
  Sex: Male
  Weight: 82.3 kg

DRUGS (2)
  1. CRESTOR [Suspect]
     Indication: HYPERLIPIDAEMIA
     Dosage: ONE DOSE
     Route: 048
     Dates: start: 20050823, end: 20050824
  2. CRESTOR [Suspect]
     Route: 048
     Dates: start: 20040101

REACTIONS (3)
  - ABASIA [None]
  - BLOOD PHOSPHORUS DECREASED [None]
  - RHABDOMYOLYSIS [None]
